FAERS Safety Report 9497667 (Version 2)
Quarter: 2013Q3

REPORT INFORMATION
  Report Type: Spontaneous
  Country: GB (occurrence: GB)
  Receive Date: 20130904
  Receipt Date: 20130906
  Transmission Date: 20140515
  Serious: Yes (Death, Hospitalization, Other)
  Sender: FDA-Public Use
  Company Number: GB-ASTRAZENECA-2013SE66903

PATIENT
  Age: 82 Year
  Sex: Male
  Weight: 68 kg

DRUGS (5)
  1. OMEPRAZOLE [Suspect]
     Indication: HIATUS HERNIA
     Route: 048
     Dates: start: 20121231, end: 20130509
  2. ASPIRIN [Concomitant]
  3. DIGOXIN [Concomitant]
  4. LISINOPRIL [Concomitant]
  5. SIMVASTATIN [Concomitant]

REACTIONS (4)
  - Blood calcium decreased [Unknown]
  - Hypomagnesaemia [Recovered/Resolved with Sequelae]
  - Death [Fatal]
  - Diarrhoea [Not Recovered/Not Resolved]
